FAERS Safety Report 25962739 (Version 1)
Quarter: 2025Q4

REPORT INFORMATION
  Report Type: Spontaneous
  Country: US (occurrence: None)
  Receive Date: 20251025
  Receipt Date: 20251025
  Transmission Date: 20260118
  Serious: Yes (Hospitalization)
  Sender: FDA-CTU
  Company Number: None

PATIENT
  Age: 58 Year
  Sex: Female
  Weight: 71.5 kg

DRUGS (2)
  1. SPRYCEL [Suspect]
     Active Substance: DASATINIB
     Indication: Product used for unknown indication
     Dates: end: 20251017
  2. VINCRISTINE SULFATE [Suspect]
     Active Substance: VINCRISTINE SULFATE
     Dates: end: 20251008

REACTIONS (4)
  - Paranoia [None]
  - Substance use [None]
  - Mental status changes [None]
  - Sleep deficit [None]

NARRATIVE: CASE EVENT DATE: 20251018
